FAERS Safety Report 17736083 (Version 1)
Quarter: 2020Q2

REPORT INFORMATION
  Report Type: Spontaneous
  Country: DE (occurrence: DE)
  Receive Date: 20200501
  Receipt Date: 20200501
  Transmission Date: 20200714
  Serious: Yes (Death, Hospitalization)
  Sender: FDA-Public Use
  Company Number: DE-TEVA-2020-DE-1227798

PATIENT
  Age: 85 Year
  Sex: Male

DRUGS (15)
  1. MARCUMAR [Concomitant]
     Active Substance: PHENPROCOUMON
     Dosage: ACCORDING TO INR
  2. RAMIPRIL. [Suspect]
     Active Substance: RAMIPRIL
     Dosage: 2.5 MILLIGRAM DAILY;
     Route: 065
  3. APIDRA [Suspect]
     Active Substance: INSULIN GLULISINE
     Dosage: ACCORDING TO THE SCHEME
     Route: 058
  4. CAPROS 10MG [Concomitant]
     Dosage: 10 MILLIGRAM DAILY;
  5. MELPERON [Concomitant]
     Active Substance: MELPERONE
     Dosage: 25 MG, 1-0-0-2, 75 MG
  6. PANTOPRAZOL [Concomitant]
     Active Substance: PANTOPRAZOLE SODIUM
     Dosage: 40 MILLIGRAM DAILY;
  7. BUFORI EASYHALER 160/4,5MIKROGRAMM/DOSIS [Concomitant]
     Dosage: 4 DOSAGE FORMS DAILY;
     Route: 055
  8. ZOPICLON [Concomitant]
     Active Substance: ZOPICLONE
     Dosage: 7.5 MG, NEED
  9. PREDNISOLON [Concomitant]
     Active Substance: PREDNISOLONE
     Dosage: 20 MILLIGRAM DAILY;
  10. TORASEMID [Suspect]
     Active Substance: TORSEMIDE
     Dosage: 20 MG, 1-1-0-0 , 40 MG
     Route: 065
  11. TOUJEO [Suspect]
     Active Substance: INSULIN GLARGINE
     Dosage: 0-0-46-0
     Route: 065
  12. SALBUTAMOL [Concomitant]
     Active Substance: ALBUTEROL
     Dosage: REQUIREMENT
  13. DAXAS 500MIKROGRAMM [Concomitant]
     Dosage: 500 MICROGRAM DAILY;
  14. ULTIBRO BREEZHALERBREEZHALER 85MIKROGRAMM/43MIKROGRAMM [Concomitant]
     Dosage: 1 DOSAGE FORMS DAILY;
     Route: 055
  15. FORMATRIS 12MIKROGRAMM [Concomitant]
     Dosage: REQUIREMENT

REACTIONS (10)
  - Pain [Unknown]
  - General physical health deterioration [Unknown]
  - Tachycardia [Unknown]
  - Somnolence [Unknown]
  - Hypotension [Unknown]
  - Localised infection [Unknown]
  - Chest pain [Unknown]
  - Hypoglycaemia [Unknown]
  - Oedema peripheral [Unknown]
  - Cold sweat [Unknown]
